FAERS Safety Report 12039284 (Version 1)
Quarter: 2016Q1

REPORT INFORMATION
  Report Type: Spontaneous
  Country: US (occurrence: None)
  Receive Date: 20160205
  Receipt Date: 20160205
  Transmission Date: 20160526
  Serious: No
  Sender: FDA-Public Use
  Company Number: None

PATIENT
  Age: 66 Year
  Sex: Male
  Weight: 140.1 kg

DRUGS (4)
  1. LENALIDOMIDE [Suspect]
     Active Substance: LENALIDOMIDE
     Route: 048
  2. CIALIS [Suspect]
     Active Substance: TADALAFIL
     Route: 048
  3. DEXAMETHASONE. [Suspect]
     Active Substance: DEXAMETHASONE
  4. BORTEZOMIB [Suspect]
     Active Substance: BORTEZOMIB
     Indication: PLASMA CELL MYELOMA
     Dates: start: 20160106

REACTIONS (11)
  - Hypotension [None]
  - Pyrexia [None]
  - Fluid overload [None]
  - Constipation [None]
  - Nausea [None]
  - Vomiting [None]
  - Deep vein thrombosis [None]
  - Acute kidney injury [None]
  - Acute myocardial infarction [None]
  - Ileus [None]
  - Diarrhoea [None]

NARRATIVE: CASE EVENT DATE: 20160124
